FAERS Safety Report 17724278 (Version 3)
Quarter: 2020Q3

REPORT INFORMATION
  Report Type: Spontaneous
  Country: US (occurrence: US)
  Receive Date: 20200429
  Receipt Date: 20200715
  Transmission Date: 20201102
  Serious: No
  Sender: FDA-Public Use
  Company Number: US-ASTRAZENECA-2020SE55664

PATIENT
  Age: 47 Year
  Sex: Male
  Weight: 96.2 kg

DRUGS (8)
  1. LOSARTAN. [Concomitant]
     Active Substance: LOSARTAN
  2. BYDUREON BCISE [Suspect]
     Active Substance: EXENATIDE
     Indication: TYPE 2 DIABETES MELLITUS
     Route: 058
     Dates: start: 2019
  3. POTASSIUM [Concomitant]
     Active Substance: POTASSIUM
  4. AMLOCIPINE [Concomitant]
  5. CARVEDILOL. [Concomitant]
     Active Substance: CARVEDILOL
  6. BYDUREON BCISE [Suspect]
     Active Substance: EXENATIDE
     Indication: TYPE 2 DIABETES MELLITUS
     Dosage: 3.4 ML
     Route: 058
     Dates: start: 20181126
  7. GLIMIPERIDE [Concomitant]
     Active Substance: GLIMEPIRIDE
  8. LEVOTHYROXINE. [Concomitant]
     Active Substance: LEVOTHYROXINE

REACTIONS (6)
  - Circumstance or information capable of leading to medication error [Unknown]
  - Device delivery system issue [Recovered/Resolved]
  - Product dispensing error [Unknown]
  - Hypertension [Unknown]
  - Injection site discolouration [Unknown]
  - Intentional device misuse [Unknown]
